FAERS Safety Report 10503965 (Version 2)
Quarter: 2014Q4

REPORT INFORMATION
  Report Type: Spontaneous
  Country: US (occurrence: US)
  Receive Date: 20141008
  Receipt Date: 20141008
  Transmission Date: 20150528
  Serious: No
  Sender: FDA-Public Use
  Company Number: US-BEH-2012033229

PATIENT
  Age: 30 Year
  Sex: Female
  Weight: 91 kg

DRUGS (11)
  1. EPINEPHRINE. [Concomitant]
     Active Substance: EPINEPHRINE
     Indication: PREMEDICATION
  2. SINGULAIR [Concomitant]
     Active Substance: MONTELUKAST SODIUM
  3. ALLEGRA [Concomitant]
     Active Substance: FEXOFENADINE HYDROCHLORIDE
  4. PRIVIGEN [Suspect]
     Active Substance: HUMAN IMMUNOGLOBULIN G
     Indication: IMMUNODEFICIENCY COMMON VARIABLE
     Dosage: PER MANUFACTURER^S GUIDELINES, PATIENT TOLERANCE, TO A MAXIMUM OF 445 ML/HOUR
     Route: 042
     Dates: start: 20120824, end: 20120824
  5. VERAMYST [Concomitant]
     Active Substance: FLUTICASONE FUROATE
  6. PRIVIGEN [Suspect]
     Active Substance: HUMAN IMMUNOGLOBULIN G
     Dosage: PER MANUFACTURER^S GUIDELINES, PATIENT TOLERANCE, TO A MAXIMUM OF 445 ML/HOUR
     Route: 042
     Dates: start: 20120824, end: 20120824
  7. SODIUM CHLORIDE. [Concomitant]
     Active Substance: SODIUM CHLORIDE
  8. DIPHENHYDRAMINE [Concomitant]
     Active Substance: DIPHENHYDRAMINE
     Indication: PREMEDICATION
  9. ALBUTEROL. [Concomitant]
     Active Substance: ALBUTEROL
  10. PRIVIGEN [Suspect]
     Active Substance: HUMAN IMMUNOGLOBULIN G
     Dosage: PER MANUFACTURER^S GUIDELINES, PATIENT TOLERANCE, TO A MAXIMUM OF 445 ML/HOUR
     Route: 042
     Dates: start: 20120824, end: 20120824
  11. HEPARIN [Concomitant]
     Active Substance: HEPARIN SODIUM

REACTIONS (5)
  - Vomiting [Unknown]
  - Headache [Unknown]
  - Eye infection [Recovered/Resolved]
  - Sinusitis [Recovered/Resolved]
  - Upper respiratory tract infection [Recovered/Resolved]

NARRATIVE: CASE EVENT DATE: 20120825
